FAERS Safety Report 21570908 (Version 1)
Quarter: 2022Q4

REPORT INFORMATION
  Report Type: Spontaneous
  Country: US (occurrence: US)
  Receive Date: 20221109
  Receipt Date: 20221109
  Transmission Date: 20230112
  Serious: No
  Sender: FDA-Public Use
  Company Number: US-APOTEX-2022AP010789

PATIENT
  Age: 54 Year
  Sex: Male

DRUGS (2)
  1. SIROLIMUS [Suspect]
     Active Substance: SIROLIMUS
     Indication: Hamartoma
     Dosage: 4 MILLIGRAM, QD (TITRATED TO TARGET A SERUM TROUGH LEVEL OF 5 TO 10 NG/ML)
     Route: 048
  2. AFLIBERCEPT [Concomitant]
     Active Substance: AFLIBERCEPT
     Indication: Antiangiogenic therapy
     Dosage: UNK (AT INTERVALS OF 4 TO 5 WEEKS INTERVAL)

REACTIONS (2)
  - Off label use [Unknown]
  - Abdominal discomfort [Unknown]
